FAERS Safety Report 6111937-X (Version None)
Quarter: 2009Q1

REPORT INFORMATION
  Report Type: 
  Country: None (occurrence: None)
  Receive Date: 20090311
  Receipt Date: 20090227
  Transmission Date: 20090719
  Serious: Yes (Death, Other)
  Sender: FDA-Public Use
  Company Number: DE-ROXANE LABORATORIES, INC.-2009-DE-01936GD

PATIENT
  Age: 25 Year
  Sex: Male

DRUGS (9)
  1. ACYCLOVIR [Suspect]
     Indication: HERPES ZOSTER
     Dosage: 40 MG/KG
     Route: 042
  2. AZATHIOPRINE [Suspect]
     Indication: CROHN'S DISEASE
     Dosage: 175MG
  3. FLUCONAZOLE [Suspect]
     Indication: ANTIBIOTIC THERAPY
  4. IMIPENEM [Suspect]
     Indication: ANTIBIOTIC THERAPY
  5. ERYTHROMYCIN [Suspect]
     Indication: ANTIBIOTIC THERAPY
  6. NOREPINEPHRINE [Suspect]
     Indication: BLOOD PRESSURE MANAGEMENT
  7. VASOPRESSORS [Suspect]
     Indication: BLOOD PRESSURE MANAGEMENT
  8. FOSCARNET [Suspect]
  9. EPINEPHRINE [Suspect]
     Indication: BLOOD PRESSURE MANAGEMENT

REACTIONS (12)
  - ANURIA [None]
  - BLOOD PRESSURE DECREASED [None]
  - COAGULOPATHY [None]
  - DRUG INEFFECTIVE [None]
  - HEPATIC FAILURE [None]
  - LEUKOPENIA [None]
  - METABOLIC ACIDOSIS [None]
  - MULTI-ORGAN FAILURE [None]
  - RASH [None]
  - SEPTIC SHOCK [None]
  - THROMBOCYTOPENIA [None]
  - TRANSAMINASES INCREASED [None]
